FAERS Safety Report 14910321 (Version 4)
Quarter: 2020Q4

REPORT INFORMATION
  Report Type: Report from Study
  Country: ES (occurrence: ES)
  Receive Date: 20180517
  Receipt Date: 20201203
  Transmission Date: 20210113
  Serious: Yes (Hospitalization)
  Sender: FDA-Public Use
  Company Number: ES-AMGEN-ESPCT2018063009

PATIENT
  Age: 53 Year
  Sex: Female
  Weight: 68.6 kg

DRUGS (22)
  1. KYPROLIS [Suspect]
     Active Substance: CARFILZOMIB
     Indication: PRODUCT USED FOR UNKNOWN INDICATION
     Dosage: UNK
     Route: 065
     Dates: start: 20171108, end: 20180523
  2. SEPTRIN [Concomitant]
     Active Substance: SULFAMETHOXAZOLE\TRIMETHOPRIM
     Dosage: 160-800 MILLIGRAM
     Route: 048
     Dates: start: 20180109, end: 20180323
  3. MEROPENEM. [Concomitant]
     Active Substance: MEROPENEM
     Dosage: 1000 MILLIGRAM
     Route: 042
     Dates: start: 20180311, end: 20180322
  4. LEXATIN [Concomitant]
     Dosage: 1.5 MILLIGRAM
     Route: 048
     Dates: start: 20121018
  5. PARACETAMOL [Concomitant]
     Active Substance: ACETAMINOPHEN
     Dosage: 1 GRAM
     Route: 048
     Dates: start: 20130604
  6. AMOXICILINA CLAVULANICO KERN PHARMA [Concomitant]
     Dosage: 875 MILLIGRAM
     Route: 048
     Dates: start: 20180301, end: 20180310
  7. METAMIZOL [Concomitant]
     Active Substance: METAMIZOLE SODIUM
     Dosage: 575 MILLIGRAM
     Route: 048
     Dates: start: 20171127
  8. ACETILCISTEINA [Concomitant]
     Active Substance: ACETYLCYSTEINE
     Dosage: 600 MILLIGRAM
     Route: 048
     Dates: start: 20180102, end: 20180109
  9. ACICLOVIR [Concomitant]
     Active Substance: ACYCLOVIR
     Dosage: 800 MICROGRAM
     Route: 048
     Dates: start: 20180311, end: 20180323
  10. ALPRAZOLAM. [Concomitant]
     Active Substance: ALPRAZOLAM
     Dosage: 0.25 MILLIGRAM
     Route: 048
     Dates: start: 20130628, end: 20180110
  11. LORAZEPAM. [Concomitant]
     Active Substance: LORAZEPAM
     Dosage: 1 MILLIGRAM
     Route: 048
     Dates: start: 20180109, end: 20180323
  12. CEFUROXIMA [Concomitant]
     Dosage: 250 -500 MILLIGRAM
     Route: 048
     Dates: start: 20171228, end: 20180326
  13. PANTOPRAZOL [Concomitant]
     Active Substance: PANTOPRAZOLE SODIUM
     Dosage: 20-40 MILLIGRAM
     Route: 048
     Dates: start: 20130327, end: 20180411
  14. ODENIL [Concomitant]
     Dosage: 1 UNK, UNK
     Route: 061
     Dates: start: 20140128
  15. OSTINE [Concomitant]
     Dosage: 1 UNK, UNK
     Route: 048
     Dates: start: 20140305
  16. DEXAMETHASONE. [Concomitant]
     Active Substance: DEXAMETHASONE
     Dosage: UNK
     Dates: start: 20171108, end: 20180523
  17. ARANESP [Concomitant]
     Active Substance: DARBEPOETIN ALFA
     Dosage: 150 MICROGRAM
     Route: 058
     Dates: start: 20150109
  18. LORMETAZEPAM [Concomitant]
     Active Substance: LORMETAZEPAM
     Dosage: 2 MILLIGRAM
     Route: 048
     Dates: start: 20130603
  19. BISOPROLOL [Concomitant]
     Active Substance: BISOPROLOL
     Indication: ATRIAL TACHYCARDIA
     Dosage: 2.5-5 MILLIGRAM
     Route: 048
     Dates: start: 20171218, end: 20180316
  20. OMEPRAZOL [Concomitant]
     Active Substance: OMEPRAZOLE
     Dosage: 20 MILLIGRAM
     Route: 048
     Dates: start: 20180311, end: 20180323
  21. DENOSUMAB [Suspect]
     Active Substance: DENOSUMAB
     Indication: PLASMA CELL MYELOMA
     Dosage: 1.7 MILLILITER
     Route: 065
     Dates: start: 20170201
  22. CLEXANE [Concomitant]
     Active Substance: ENOXAPARIN SODIUM
     Dosage: 40 MILLIGRAM
     Route: 058
     Dates: start: 20180109, end: 20180322

REACTIONS (1)
  - Supraventricular tachycardia [Recovered/Resolved]

NARRATIVE: CASE EVENT DATE: 20180316
